FAERS Safety Report 21690712 (Version 1)
Quarter: 2022Q4

REPORT INFORMATION
  Report Type: Spontaneous
  Country: JP (occurrence: JP)
  Receive Date: 20221206
  Receipt Date: 20221206
  Transmission Date: 20230113
  Serious: Yes (Other)
  Sender: FDA-Public Use
  Company Number: JP-ABBVIE-4225890

PATIENT
  Age: 65 Year

DRUGS (1)
  1. VENCLEXTA [Suspect]
     Active Substance: VENETOCLAX
     Indication: Acute myeloid leukaemia
     Route: 048

REACTIONS (5)
  - Pancytopenia [Unknown]
  - Necrotising retinitis [Unknown]
  - Acute febrile neutrophilic dermatosis [Unknown]
  - Herpes zoster [Unknown]
  - Pneumonia fungal [Unknown]
